FAERS Safety Report 9138787 (Version 1)
Quarter: 2013Q1

REPORT INFORMATION
  Report Type: Spontaneous
  Country: US (occurrence: US)
  Receive Date: 20130305
  Receipt Date: 20130305
  Transmission Date: 20140127
  Serious: No
  Sender: FDA-Public Use
  Company Number: US-TEVA-389411USA

PATIENT
  Sex: Female
  Weight: 58.57 kg

DRUGS (3)
  1. PROAIR HFA [Suspect]
     Indication: RESPIRATORY DISORDER
     Route: 055
     Dates: start: 201301
  2. LISINOPRIL [Concomitant]
     Indication: BLOOD PRESSURE
     Route: 048
  3. COMBIVENT [Concomitant]
     Route: 055

REACTIONS (1)
  - Dizziness [Not Recovered/Not Resolved]
